FAERS Safety Report 7279726-0 (Version None)
Quarter: 2011Q1

REPORT INFORMATION
  Report Type: 
  Country: None (occurrence: None)
  Receive Date: 20110208
  Receipt Date: 20110203
  Transmission Date: 20110831
  Serious: Yes (Hospitalization, Disabling, Other)
  Sender: FDA-Public Use
  Company Number: US-PFIZER INC-2010072347

PATIENT
  Sex: Female

DRUGS (7)
  1. NAPROXEN [Concomitant]
     Indication: PAIN
     Dosage: UNK
     Dates: start: 20040101
  2. ACYCLOVIR [Concomitant]
     Indication: ORAL HERPES
     Dosage: UNK
     Dates: start: 20070101
  3. PERCOCET [Concomitant]
     Indication: PAIN
     Dosage: UNK
     Dates: start: 20060401, end: 20080401
  4. CHANTIX [Suspect]
     Indication: SMOKING CESSATION THERAPY
     Dosage: UNK
     Dates: start: 20080131, end: 20080214
  5. AZITHROMYCIN [Concomitant]
     Indication: ANTIBIOTIC THERAPY
     Dosage: UNK
     Dates: start: 20060101, end: 20080501
  6. CETIRIZINE [Concomitant]
     Indication: HYPERSENSITIVITY
     Dosage: UNK
     Dates: start: 20070101, end: 20100801
  7. ALBUTEROL [Concomitant]
     Indication: ASTHMA
     Dosage: UNK
     Dates: start: 20060101, end: 20100101

REACTIONS (4)
  - ANXIETY [None]
  - DEPRESSION [None]
  - SUICIDE ATTEMPT [None]
  - POST-TRAUMATIC STRESS DISORDER [None]
